FAERS Safety Report 25183506 (Version 1)
Quarter: 2025Q2

REPORT INFORMATION
  Report Type: Spontaneous
  Country: US (occurrence: None)
  Receive Date: 20250409
  Receipt Date: 20250409
  Transmission Date: 20250717
  Serious: Yes (Death)
  Sender: FDA-CTU
  Company Number: None

PATIENT
  Age: 60 Year
  Sex: Male

DRUGS (12)
  1. TEMOZOLOMIDE [Suspect]
     Active Substance: TEMOZOLOMIDE
     Indication: Hepatic cancer
     Dosage: FREQUENCY : DAILY;?
     Dates: start: 20250304, end: 20250402
  2. TEMOZOLOMIDE [Suspect]
     Active Substance: TEMOZOLOMIDE
     Indication: Bile duct cancer
  3. ASPIRIN EC TAB 81 MG [Concomitant]
  4. CHOLESTYRAM POW 4GM [Concomitant]
  5. DEXAMETHASON TAB 1 MG [Concomitant]
  6. HYDROXYUREA [Concomitant]
     Active Substance: HYDROXYUREA
  7. HYDROXYZ HCL TAB 25MG [Concomitant]
  8. MIRALAX POW 3350 NF [Concomitant]
  9. OMEPRAZOLE TAB 20MG [Concomitant]
  10. POTASSIUM POW CHLORIDE [Concomitant]
  11. PROCHLORPER TAB 10MG [Concomitant]
  12. ROSUVASTATIN [Concomitant]
     Active Substance: ROSUVASTATIN

REACTIONS (1)
  - Death [None]

NARRATIVE: CASE EVENT DATE: 20250402
